FAERS Safety Report 4489866-7 (Version None)
Quarter: 2004Q4

REPORT INFORMATION
  Report Type: 
  Country: None (occurrence: None)
  Receive Date: 20041026
  Receipt Date: 20040831
  Transmission Date: 20050328
  Serious: Yes (Other)
  Sender: FDA-Public Use
  Company Number: M2004-1568

PATIENT
  Age: 25 Year
  Sex: Female

DRUGS (4)
  1. FLUCONAZOLE [Suspect]
     Indication: SYSTEMIC CANDIDA
     Dosage: 600 MG/DAY, 800 MG/DAY FOR 4 CONSECUTIVES DAYS
  2. FUROSEMIDE [Concomitant]
  3. AMIODARONE (AMIODARONE, 200 MG/D) [Concomitant]
  4. MULTIPLE DRUGS WITHIN THE WEEKS PRIOR TO DINTRUDUCTION OF FLUCONAZOLE [Concomitant]

REACTIONS (8)
  - ABDOMINAL PAIN UPPER [None]
  - CARDIAC VALVE DISEASE [None]
  - HYPOTENSION [None]
  - MITRAL VALVE DISEASE [None]
  - NAUSEA [None]
  - PYREXIA [None]
  - TORSADE DE POINTES [None]
  - VENTRICULAR TACHYCARDIA [None]
